FAERS Safety Report 9099702 (Version 2)
Quarter: 2013Q1

REPORT INFORMATION
  Report Type: Report from Study
  Country: ES (occurrence: ES)
  Receive Date: 20130214
  Receipt Date: 20130228
  Transmission Date: 20140127
  Serious: Yes (Hospitalization)
  Sender: FDA-Public Use
  Company Number: ES-ELI_LILLY_AND_COMPANY-ES201208005282

PATIENT
  Age: 66 Year
  Sex: Male
  Weight: 81 kg

DRUGS (9)
  1. GEMCITABINE HYDROCHLORIDE [Suspect]
     Indication: NON-SMALL CELL LUNG CANCER
     Dosage: 2325 MG, UNKNOWN
     Route: 042
     Dates: start: 20120713, end: 20120713
  2. GEMCITABINE HYDROCHLORIDE [Suspect]
     Dosage: UNK
     Dates: start: 201208
  3. CISPLATIN [Suspect]
     Indication: NON-SMALL CELL LUNG CANCER
     Dosage: 140 MG, UNKNOWN
     Route: 042
     Dates: start: 20120713, end: 20120713
  4. CISPLATIN [Suspect]
     Dosage: UNK
     Dates: start: 201208
  5. FORTECORTIN [Concomitant]
     Dosage: UNK, UNKNOWN
     Route: 065
  6. DOXAZOSINE [Concomitant]
     Dosage: UNK, UNKNOWN
     Route: 065
  7. METFORMIN [Concomitant]
     Dosage: UNK, UNKNOWN
     Route: 065
  8. KARVEZIDE [Concomitant]
     Dosage: UNK, UNKNOWN
     Route: 065
  9. FLUVASTATINE [Concomitant]
     Dosage: UNK, UNKNOWN
     Route: 065

REACTIONS (3)
  - Febrile neutropenia [Recovered/Resolved]
  - Pneumonia [Recovered/Resolved]
  - Thrombocytopenia [Recovered/Resolved]
